FAERS Safety Report 11075081 (Version 1)
Quarter: 2015Q2

REPORT INFORMATION
  Report Type: Spontaneous
  Country: US (occurrence: None)
  Receive Date: 20150428
  Receipt Date: 20150428
  Transmission Date: 20150821
  Serious: Yes (Other)
  Sender: FDA-Public Use
  Company Number: None

PATIENT
  Age: 44 Year
  Sex: Female
  Weight: 58.97 kg

DRUGS (3)
  1. ASMANEX [Suspect]
     Active Substance: MOMETASONE FUROATE
     Indication: ASTHMA
     Dosage: PUFF
     Route: 055
     Dates: start: 20141104, end: 20141104
  2. HERBAL HORMONE SUPPLEMENT [Concomitant]
  3. MULTI VITAMIN [Concomitant]
     Active Substance: VITAMINS

REACTIONS (2)
  - Headache [None]
  - Asthma [None]

NARRATIVE: CASE EVENT DATE: 20141104
